FAERS Safety Report 8342690 (Version 6)
Quarter: 2014Q1

REPORT INFORMATION
  Report Type: Spontaneous
  Country: US (occurrence: US)
  Receive Date: 20120118
  Receipt Date: 20140327
  Transmission Date: 20141002
  Serious: Yes (Other)
  Sender: FDA-Public Use
  Company Number: US-ASTRAZENECA-2012SE02709

PATIENT
  Age: 67 Year
  Sex: Female

DRUGS (4)
  1. ATACAND [Suspect]
     Route: 048
  2. ATACAND [Suspect]
     Dosage: GENERIC
     Route: 065
  3. LISINOPRIL [Suspect]
     Route: 048
  4. PENTOXIFYLLINE [Concomitant]

REACTIONS (9)
  - Cerebrovascular accident [Unknown]
  - Arterial occlusive disease [Unknown]
  - Hypertension [Unknown]
  - Cataract [Unknown]
  - Visual impairment [Unknown]
  - Malaise [Unknown]
  - Drug intolerance [Unknown]
  - Hypersensitivity [Unknown]
  - Drug ineffective [Unknown]
